FAERS Safety Report 6516622-8 (Version None)
Quarter: 2009Q4

REPORT INFORMATION
  Report Type: 
  Country: None (occurrence: None)
  Receive Date: 20091223
  Receipt Date: 20091217
  Transmission Date: 20100525
  Serious: Yes (Life-Threatening, Disabling, Other)
  Sender: FDA-Public Use
  Company Number: JP-MERCK-0911USA01675

PATIENT
  Age: 96 Year
  Sex: Female
  Weight: 38 kg

DRUGS (7)
  1. STROMECTOL [Suspect]
     Indication: ACARODERMATITIS
     Route: 048
     Dates: start: 20090804, end: 20090804
  2. STROMECTOL [Suspect]
     Route: 048
     Dates: start: 20090811, end: 20090811
  3. ALLOZYM [Concomitant]
     Indication: HYPERURICAEMIA
     Route: 048
     Dates: start: 20080630, end: 20090812
  4. LANIRAPID [Concomitant]
     Indication: CARDIAC FAILURE
     Route: 048
     Dates: start: 20080630
  5. LASIX [Concomitant]
     Indication: CARDIAC FAILURE
     Route: 048
     Dates: start: 20080630
  6. NITROGLYCERIN [Concomitant]
     Indication: CARDIAC FAILURE
     Route: 061
     Dates: start: 20090630
  7. AMINOPHYLLINE [Concomitant]
     Indication: CARDIAC FAILURE
     Route: 048
     Dates: start: 20090630

REACTIONS (3)
  - ALANINE AMINOTRANSFERASE INCREASED [None]
  - ASPARTATE AMINOTRANSFERASE INCREASED [None]
  - LIVER DISORDER [None]
